FAERS Safety Report 9695101 (Version 2)
Quarter: 2013Q4

REPORT INFORMATION
  Report Type: Report from Study
  Country: US (occurrence: US)
  Receive Date: 20131119
  Receipt Date: 20131125
  Transmission Date: 20140711
  Serious: Yes (Death)
  Sender: FDA-Public Use
  Company Number: PHEH2013US024110

PATIENT
  Age: 28 Year
  Sex: Male

DRUGS (2)
  1. TOBI PODHALER [Suspect]
     Indication: CYSTIC FIBROSIS
     Dosage: 112 MG, BID
  2. TOBI PODHALER [Suspect]
     Indication: PSEUDOMONAS INFECTION

REACTIONS (1)
  - Death [Fatal]
